FAERS Safety Report 17241265 (Version 1)
Quarter: 2020Q1

REPORT INFORMATION
  Report Type: Spontaneous
  Country: US (occurrence: US)
  Receive Date: 20200106
  Receipt Date: 20200106
  Transmission Date: 20200409
  Serious: No
  Sender: FDA-Public Use
  Company Number: None

PATIENT
  Age: 54 Year
  Sex: Female
  Weight: 56.25 kg

DRUGS (2)
  1. EMGALITY [Suspect]
     Active Substance: GALCANEZUMAB-GNLM
     Indication: MIGRAINE
     Dosage: ?          QUANTITY:2 INJECTION(S);OTHER FREQUENCY:MONTHLY;?
     Route: 030
     Dates: start: 20191231
  2. ZOMIG [Concomitant]
     Active Substance: ZOLMITRIPTAN

REACTIONS (4)
  - Migraine [None]
  - Constipation [None]
  - Injection site pain [None]
  - Hypotension [None]

NARRATIVE: CASE EVENT DATE: 20200105
